FAERS Safety Report 14672531 (Version 1)
Quarter: 2018Q1

REPORT INFORMATION
  Report Type: Spontaneous
  Country: US (occurrence: US)
  Receive Date: 20180322
  Receipt Date: 20180322
  Transmission Date: 20180509
  Serious: No
  Sender: FDA-Public Use
  Company Number: None

PATIENT
  Age: 9 Year
  Sex: Female

DRUGS (1)
  1. NUTROPIN AQ NUSPIN 10 [Suspect]
     Active Substance: SOMATROPIN
     Dosage: FREQUENCY?6 DAY/WK
     Route: 058
     Dates: start: 20170222, end: 20180322

REACTIONS (2)
  - Drug dose omission [None]
  - Economic problem [None]

NARRATIVE: CASE EVENT DATE: 20180322
